FAERS Safety Report 7555524-5 (Version None)
Quarter: 2011Q2

REPORT INFORMATION
  Report Type: 
  Country: None (occurrence: None)
  Receive Date: 20110617
  Receipt Date: 20030828
  Transmission Date: 20111010
  Serious: Yes (Hospitalization)
  Sender: FDA-Public Use
  Company Number: PHEH2003US07902

PATIENT
  Sex: Male

DRUGS (6)
  1. NORVASC [Concomitant]
     Dosage: UNK
  2. LOPRESSOR [Concomitant]
     Dosage: UNK
  3. ZYPREXA [Concomitant]
     Dosage: UNK
  4. ASPIRIN [Concomitant]
     Dosage: UNK
  5. PRANDIN [Concomitant]
     Dosage: UNK
  6. EXELON [Suspect]
     Indication: DEMENTIA ALZHEIMER'S TYPE
     Dosage: 1.5 MG, BID
     Dates: start: 20030708, end: 20030806

REACTIONS (2)
  - SYNCOPE [None]
  - CAROTID ARTERY OCCLUSION [None]
